FAERS Safety Report 13069670 (Version 2)
Quarter: 2017Q1

REPORT INFORMATION
  Report Type: Spontaneous
  Country: FR (occurrence: FR)
  Receive Date: 20161228
  Receipt Date: 20170310
  Transmission Date: 20170428
  Serious: Yes (Other)
  Sender: FDA-Public Use
  Company Number: FR-009507513-1612FRA010978

PATIENT
  Age: 74 Year
  Sex: Male

DRUGS (14)
  1. IVABRADINE [Concomitant]
     Active Substance: IVABRADINE
  2. KEYTRUDA [Suspect]
     Active Substance: PEMBROLIZUMAB
     Indication: MALIGNANT MELANOMA
     Dosage: (200 MG, PER CYCLE), 2 MG/KG EVERY 21 DAYS.
     Route: 042
     Dates: start: 20160511, end: 20161115
  3. LORATADINE. [Concomitant]
     Active Substance: LORATADINE
     Route: 048
  4. ASPIRIN PROTECT [Concomitant]
     Active Substance: ASPIRIN
  5. EFFERALGAN [Concomitant]
     Active Substance: ACETAMINOPHEN
     Route: 048
  6. VICTOZA [Concomitant]
     Active Substance: LIRAGLUTIDE
  7. GLUCOPHAGE [Concomitant]
     Active Substance: METFORMIN HYDROCHLORIDE
     Dosage: UNK
     Route: 048
     Dates: end: 20161025
  8. NICORANDIL [Concomitant]
     Active Substance: NICORANDIL
  9. PARIET [Concomitant]
     Active Substance: RABEPRAZOLE SODIUM
     Dosage: GASTRO- RESISTANT TABLET
     Route: 048
  10. TIMOFEROL [Concomitant]
     Active Substance: ASCORBIC ACID\FERROUS SULFATE
  11. INSPRA [Suspect]
     Active Substance: EPLERENONE
     Dosage: 25 MG, QD
     Route: 048
     Dates: end: 20161115
  12. NOVO-NORM [Concomitant]
     Active Substance: REPAGLINIDE
  13. LASILIX [Concomitant]
     Active Substance: FUROSEMIDE
     Dosage: UNK
     Route: 048
     Dates: end: 20161025
  14. TEMERIT [Concomitant]
     Active Substance: NEBIVOLOL
     Route: 048

REACTIONS (1)
  - Acute kidney injury [Recovering/Resolving]

NARRATIVE: CASE EVENT DATE: 20160910
